FAERS Safety Report 15345744 (Version 1)
Quarter: 2018Q4

REPORT INFORMATION
  Report Type: Spontaneous
  Country: IE (occurrence: IE)
  Receive Date: 20180904
  Receipt Date: 20180904
  Transmission Date: 20190204
  Serious: Yes (Other)
  Sender: FDA-Public Use
  Company Number: IE-TEVA-2018-IE-951093

PATIENT
  Age: 6 Year
  Sex: Female

DRUGS (3)
  1. VENTOLIN (GENERIC) [Concomitant]
     Route: 065
  2. MONTELUKAST SODIUM (G) [Suspect]
     Active Substance: MONTELUKAST SODIUM
     Indication: ASTHMA
     Dosage: 5 MILLIGRAM DAILY;
     Route: 048
     Dates: start: 201710, end: 201804
  3. BECOTIDE (G) [Concomitant]
     Route: 065

REACTIONS (4)
  - Sleep terror [Not Recovered/Not Resolved]
  - Depression [Not Recovered/Not Resolved]
  - Somnambulism [Not Recovered/Not Resolved]
  - Anxiety [Not Recovered/Not Resolved]
